FAERS Safety Report 22658824 (Version 8)
Quarter: 2024Q2

REPORT INFORMATION
  Report Type: Report from Study
  Country: JP (occurrence: JP)
  Receive Date: 20230630
  Receipt Date: 20240425
  Transmission Date: 20240716
  Serious: No
  Sender: FDA-Public Use
  Company Number: JP-UCBJ-CD202304200UCBPHAPROD

PATIENT
  Age: 18 Year
  Sex: Female
  Weight: 29 kg

DRUGS (23)
  1. FENFLURAMINE HYDROCHLORIDE [Suspect]
     Active Substance: FENFLURAMINE HYDROCHLORIDE
     Indication: Severe myoclonic epilepsy of infancy
     Dosage: 0.05 MILLIGRAM/KILOGRAM, 2X/DAY (BID)
     Route: 048
     Dates: start: 20230328
  2. FENFLURAMINE HYDROCHLORIDE [Suspect]
     Active Substance: FENFLURAMINE HYDROCHLORIDE
     Dosage: 0.075 MILLIGRAM/KILOGRAM, 2X/DAY (BID)
     Route: 048
     Dates: start: 20230425
  3. FENFLURAMINE HYDROCHLORIDE [Suspect]
     Active Substance: FENFLURAMINE HYDROCHLORIDE
     Dosage: 0.1 MILLIGRAM/KILOGRAM, 2X/DAY (BID)
     Route: 048
     Dates: start: 20230620
  4. FENFLURAMINE HYDROCHLORIDE [Suspect]
     Active Substance: FENFLURAMINE HYDROCHLORIDE
     Dosage: 0.125 MILLIGRAM/KILOGRAM, 2X/DAY (BID)
     Route: 048
     Dates: start: 20230912
  5. TOPIRAMATE [Suspect]
     Active Substance: TOPIRAMATE
     Indication: Product used for unknown indication
     Dosage: UNK
     Route: 048
  6. TOPIRAMATE [Suspect]
     Active Substance: TOPIRAMATE
     Dosage: 2.8 MILLIGRAM/KILOGRAM PER DAY
     Route: 048
  7. TOPIRAMATE [Suspect]
     Active Substance: TOPIRAMATE
     Dosage: 1 MILLIGRAM/KILOGRAM PER DAY
     Route: 048
  8. TOPIRAMATE [Suspect]
     Active Substance: TOPIRAMATE
     Dosage: 100 MILLIGRAM, ONCE DAILY (QD)
     Route: 048
     Dates: start: 20230410
  9. TOPIRAMATE [Suspect]
     Active Substance: TOPIRAMATE
     Dosage: 90 MILLIGRAM, ONCE DAILY (QD)
     Route: 048
     Dates: start: 20230411, end: 20230424
  10. TOPIRAMATE [Suspect]
     Active Substance: TOPIRAMATE
     Dosage: 70 MILLIGRAM, ONCE DAILY (QD)
     Route: 048
     Dates: start: 20230425, end: 20230605
  11. TOPIRAMATE [Suspect]
     Active Substance: TOPIRAMATE
     Dosage: 60 MILLIGRAM, ONCE DAILY (QD)
     Route: 048
     Dates: start: 20230606, end: 20230706
  12. TOPIRAMATE [Suspect]
     Active Substance: TOPIRAMATE
     Dosage: 40 MILLIGRAM, ONCE DAILY (QD)
     Route: 048
     Dates: start: 20230801, end: 20230829
  13. TOPIRAMATE [Suspect]
     Active Substance: TOPIRAMATE
     Dosage: 20 MILLIGRAM, ONCE DAILY (QD)
     Route: 048
     Dates: start: 20230830, end: 20230925
  14. TOPIRAMATE [Suspect]
     Active Substance: TOPIRAMATE
     Dosage: 10 MILLIGRAM, ONCE DAILY (QD)
     Route: 048
     Dates: start: 20230926, end: 20231106
  15. MYSTAN [Concomitant]
     Active Substance: CLOBAZAM
     Indication: Severe myoclonic epilepsy of infancy
     Dosage: 2.8 MILLIGRAM PER DAY
     Route: 048
  16. DIACOMIT [Concomitant]
     Active Substance: STIRIPENTOL
     Indication: Severe myoclonic epilepsy of infancy
     Dosage: 750 MILLIGRAM PER DAY
     Route: 048
  17. VALPROATE SODIUM [Concomitant]
     Active Substance: VALPROATE SODIUM
     Indication: Severe myoclonic epilepsy of infancy
     Dosage: 800 MILLIGRAM PER DAY
     Route: 048
  18. LEVOCARNITINE [Concomitant]
     Active Substance: LEVOCARNITINE
     Indication: Prophylaxis
     Dosage: UNK, PER DAY
     Route: 048
  19. EPHEDRA SINICA STEM\HERBALS [Concomitant]
     Active Substance: EPHEDRA SINICA STEM\HERBALS
     Indication: Product used for unknown indication
     Dosage: PER DAY
     Route: 048
     Dates: start: 20230208, end: 20230410
  20. MIDAZOLAM HYDROCHLORIDE [Concomitant]
     Active Substance: MIDAZOLAM HYDROCHLORIDE
     Indication: Severe myoclonic epilepsy of infancy
     Dosage: 5 MILLIGRAM PER DAY
     Route: 048
  21. CHLORAL HYDRATE [Concomitant]
     Active Substance: CHLORAL HYDRATE
     Indication: Severe myoclonic epilepsy of infancy
     Dosage: 500 MILLIGRAM PER DAY
     Route: 054
  22. FLOMOX [CEFCAPENE PIVOXIL HYDROCHLORIDE HYDRATE] [Concomitant]
     Indication: Product used for unknown indication
     Dosage: UNK, FGR
     Route: 048
     Dates: start: 20230328, end: 20230401
  23. CINAL [ASCORBIC ACID;CALCIUM PANTOTHENATE] [Concomitant]
     Indication: Acarodermatitis
     Dosage: UNK
     Route: 048
     Dates: start: 20231205

REACTIONS (8)
  - Decreased appetite [Recovered/Resolved]
  - Acarodermatitis [Recovering/Resolving]
  - Dehydration [Recovered/Resolved]
  - Stomatitis [Recovered/Resolved]
  - Coronavirus infection [Recovered/Resolved]
  - Anticonvulsant drug level increased [Recovered/Resolved]
  - Off label use [Unknown]
  - Prescribed underdose [Unknown]

NARRATIVE: CASE EVENT DATE: 20230401
